FAERS Safety Report 7086334-3 (Version None)
Quarter: 2010Q4

REPORT INFORMATION
  Report Type: 
  Country: None (occurrence: None)
  Receive Date: 20101105
  Receipt Date: 20101103
  Transmission Date: 20110411
  Serious: Yes (Death)
  Sender: FDA-Public Use
  Company Number: GB-SANOFI-AVENTIS-2010SA066875

PATIENT
  Age: 50 Year
  Sex: Female

DRUGS (3)
  1. OXALIPLATIN [Suspect]
     Indication: METASTATIC GASTRIC CANCER
  2. XELODA [Suspect]
     Indication: METASTATIC GASTRIC CANCER
  3. CISPLATIN [Suspect]
     Indication: METASTATIC GASTRIC CANCER

REACTIONS (1)
  - CARDIAC ARREST [None]
